FAERS Safety Report 7638919-0 (Version None)
Quarter: 2011Q3

REPORT INFORMATION
  Report Type: 
  Country: None (occurrence: None)
  Receive Date: 20110725
  Receipt Date: 20110725
  Transmission Date: 20111222
  Serious: No
  Sender: FDA-Public Use
  Company Number: None

PATIENT
  Sex: Female

DRUGS (2)
  1. ALPRAZOLAM [Suspect]
     Indication: DEPRESSION
     Dosage: 2MG QD PO
     Route: 048
     Dates: start: 20110706, end: 20110721
  2. ALPRAZOLAM [Suspect]
     Indication: ANXIETY
     Dosage: 2MG QD PO
     Route: 048
     Dates: start: 20110706, end: 20110721

REACTIONS (2)
  - DRUG INEFFECTIVE [None]
  - PRODUCT QUALITY ISSUE [None]
